FAERS Safety Report 10444006 (Version 1)
Quarter: 2014Q3

REPORT INFORMATION
  Report Type: Spontaneous
  Country: CH (occurrence: None)
  Receive Date: 20140908
  Receipt Date: 20140908
  Transmission Date: 20150326
  Serious: Yes (Hospitalization)
  Sender: FDA-Public Use
  Company Number: 2014243484

PATIENT
  Age: 85 Year
  Sex: Female

DRUGS (16)
  1. KCL [Suspect]
     Active Substance: POTASSIUM CHLORIDE
     Indication: ELECTROLYTE SUBSTITUTION THERAPY
     Route: 048
  2. NOVALGIN [Concomitant]
     Active Substance: METAMIZOLE SODIUM
  3. RENITEN (ENALAPRIL MALEATE) [Concomitant]
  4. FRAGMIN [Suspect]
     Active Substance: DALTEPARIN SODIUM
     Indication: THROMBOSIS PROPHYLAXIS
     Dosage: 1X/DAY
     Route: 058
     Dates: start: 20140406
  5. TRITTICO (TRAZODONE HYDROCHLORIDE) [Concomitant]
     Active Substance: TRAZODONE HYDROCHLORIDE
  6. MEPHANOL (ALLOPURINOL) [Concomitant]
  7. SORTIS (ATORVASTATIN) [Concomitant]
  8. PLAVIX [Suspect]
     Active Substance: CLOPIDOGREL BISULFATE
     Indication: CEREBRAL INFARCTION
     Dosage: 1X/DAY (1-0-0)
     Route: 048
     Dates: start: 1998, end: 20140420
  9. TEMESTA (LORAZEPAM) [Concomitant]
     Active Substance: LORAZEPAM
  10. DAFALGAN (PARACETAMOL) [Concomitant]
  11. PARAGOL (PARAFFIN, LIQUID, PHENOLPHTHALEIN) [Concomitant]
  12. DISTRANEURIN (CLOMETHIAZOLE) [Concomitant]
  13. MOVICOL (MACROGOL, POTASSIUM CHLORIDE, SODIUM BICARBONATE, SODIUM CHLORIDE) [Concomitant]
  14. FERRO SANOL (AMINOACETIC ACID, FERROUS SULFATE) [Concomitant]
  15. SEROQUEL [Concomitant]
     Active Substance: QUETIAPINE FUMARATE
  16. EXELON [Concomitant]
     Active Substance: RIVASTIGMINE TARTRATE

REACTIONS (9)
  - Gastric ulcer haemorrhage [None]
  - International normalised ratio increased [None]
  - Hepatic cirrhosis [None]
  - Melaena [None]
  - Depressed level of consciousness [None]
  - Haemorrhagic anaemia [None]
  - Malnutrition [None]
  - Drug interaction [None]
  - Hypoalbuminaemia [None]

NARRATIVE: CASE EVENT DATE: 201404
